FAERS Safety Report 7301155-1 (Version None)
Quarter: 2011Q1

REPORT INFORMATION
  Report Type: 
  Country: None (occurrence: None)
  Receive Date: 20110218
  Receipt Date: 20101227
  Transmission Date: 20110831
  Serious: Yes (Hospitalization)
  Sender: FDA-Public Use
  Company Number: US-BAYER-201034364NA

PATIENT
  Sex: Female

DRUGS (4)
  1. OCELLA [Suspect]
     Indication: PRODUCT USED FOR UNKNOWN INDICATION
     Route: 048
     Dates: start: 20080727, end: 20080814
  2. YASMIN [Suspect]
     Indication: PRODUCT USED FOR UNKNOWN INDICATION
     Route: 048
     Dates: start: 20080307, end: 20080727
  3. YAZ [Suspect]
     Indication: PRODUCT USED FOR UNKNOWN INDICATION
  4. YASMIN [Suspect]
     Route: 048
     Dates: start: 20021204, end: 20030708

REACTIONS (2)
  - PULMONARY EMBOLISM [None]
  - DEEP VEIN THROMBOSIS [None]
